FAERS Safety Report 18839378 (Version 1)
Quarter: 2021Q1

REPORT INFORMATION
  Report Type: Report from Study
  Country: CA (occurrence: CA)
  Receive Date: 20210203
  Receipt Date: 20210203
  Transmission Date: 20210419
  Serious: No
  Sender: FDA-Public Use
  Company Number: CA-EXELIXIS-CABO-20033278

PATIENT
  Sex: Male

DRUGS (1)
  1. CABOMETYX [Suspect]
     Active Substance: CABOZANTINIB S-MALATE
     Indication: METASTASIS
     Dosage: 60 MG, QD
     Route: 048
     Dates: start: 20200825, end: 20200922

REACTIONS (4)
  - Off label use [Unknown]
  - Hypothyroidism [Unknown]
  - Gastrointestinal inflammation [Unknown]
  - Palmar-plantar erythrodysaesthesia syndrome [Unknown]
